FAERS Safety Report 6215526-8 (Version None)
Quarter: 2009Q2

REPORT INFORMATION
  Report Type: 
  Country: None (occurrence: None)
  Receive Date: 20090604
  Receipt Date: 20090526
  Transmission Date: 20091009
  Serious: Yes (Other)
  Sender: FDA-Public Use
  Company Number: DE-RANBAXY-2009RR-24545

PATIENT
  Age: 64 Year
  Sex: Female

DRUGS (1)
  1. IBUPROFEN [Suspect]
     Indication: DRUG HYPERSENSITIVITY
     Dosage: 1560 MG, UNK
     Route: 048
     Dates: start: 20090518, end: 20090518

REACTIONS (3)
  - DYSPHONIA [None]
  - HYPERSENSITIVITY [None]
  - URTICARIA [None]
